FAERS Safety Report 14783526 (Version 1)
Quarter: 2018Q2

REPORT INFORMATION
  Report Type: Report from Study
  Country: CZ (occurrence: CZ)
  Receive Date: 20180420
  Receipt Date: 20180420
  Transmission Date: 20180711
  Serious: Yes (Hospitalization, Other)
  Sender: FDA-Public Use
  Company Number: CZ-JNJFOC-20180418198

PATIENT
  Age: 66 Year
  Sex: Female
  Weight: 75 kg

DRUGS (6)
  1. ESTRADIOL. [Concomitant]
     Active Substance: ESTRADIOL
     Route: 065
  2. SIMPONI [Suspect]
     Active Substance: GOLIMUMAB
     Indication: RHEUMATOID ARTHRITIS
     Route: 058
     Dates: start: 20150909
  3. PRESTARIUM NEO [Concomitant]
     Active Substance: PERINDOPRIL ARGININE
     Route: 065
  4. VIGANTOL [Concomitant]
     Active Substance: CHOLECALCIFEROL
     Route: 065
  5. METHOTREXATE. [Concomitant]
     Active Substance: METHOTREXATE
     Route: 065
  6. ACIDUM FOLICUM [Concomitant]
     Active Substance: FOLIC ACID
     Route: 065

REACTIONS (2)
  - Pneumonia [Recovered/Resolved]
  - Joint destruction [Recovering/Resolving]

NARRATIVE: CASE EVENT DATE: 20171023
